FAERS Safety Report 4478330-7 (Version None)
Quarter: 2004Q4

REPORT INFORMATION
  Report Type: 
  Country: None (occurrence: None)
  Receive Date: 20041018
  Receipt Date: 20041018
  Transmission Date: 20050328
  Serious: No
  Sender: FDA-Public Use
  Company Number: None

PATIENT
  Age: 69 Year
  Sex: Male
  Weight: 85.2762 kg

DRUGS (3)
  1. DOXAZOSIN MESYLATE [Suspect]
     Indication: BENIGN PROSTATIC HYPERPLASIA
     Dosage: PO Q PM
     Route: 048
     Dates: start: 20040801
  2. DOXAZOSIN MESYLATE [Suspect]
     Indication: URINARY RETENTION
     Dosage: PO Q PM
     Route: 048
     Dates: start: 20040801
  3. NORVASC [Concomitant]

REACTIONS (3)
  - CONDITION AGGRAVATED [None]
  - DRUG EFFECT DECREASED [None]
  - URINARY RETENTION [None]
